FAERS Safety Report 4956678-7 (Version None)
Quarter: 2006Q1

REPORT INFORMATION
  Report Type: 
  Country: None (occurrence: None)
  Receive Date: 20060329
  Receipt Date: 20050902
  Transmission Date: 20060701
  Serious: Yes (Hospitalization, Disabling, Other)
  Sender: FDA-Public Use
  Company Number: PHFR2005GB02961

PATIENT
  Age: 26 Year
  Sex: Male
  Weight: 129 kg

DRUGS (1)
  1. CLOZARIL [Suspect]
     Indication: SCHIZOPHRENIA
     Dosage: 300MG PER DAY
     Route: 048
     Dates: start: 20030519

REACTIONS (20)
  - BLOOD ALBUMIN DECREASED [None]
  - BLOOD CHOLESTEROL INCREASED [None]
  - BLOOD GLUCOSE ABNORMAL [None]
  - BLOOD GLUCOSE INCREASED [None]
  - BLOOD POTASSIUM DECREASED [None]
  - BLOOD TRIGLYCERIDES INCREASED [None]
  - BLOOD UREA DECREASED [None]
  - BUNDLE BRANCH BLOCK RIGHT [None]
  - C-REACTIVE PROTEIN INCREASED [None]
  - DIABETES MELLITUS INSULIN-DEPENDENT [None]
  - FATIGUE [None]
  - GLYCOSYLATED HAEMOGLOBIN INCREASED [None]
  - HAEMATOCRIT DECREASED [None]
  - HYPERHIDROSIS [None]
  - LETHARGY [None]
  - OVERWEIGHT [None]
  - POLLAKIURIA [None]
  - PROTEIN TOTAL DECREASED [None]
  - THIRST [None]
  - URINE KETONE BODY PRESENT [None]
